FAERS Safety Report 6180494-4 (Version None)
Quarter: 2009Q2

REPORT INFORMATION
  Report Type: 
  Country: None (occurrence: None)
  Receive Date: 20090504
  Receipt Date: 20090504
  Transmission Date: 20091009
  Serious: Yes (Death, Life-Threatening)
  Sender: FDA-Public Use
  Company Number: None

PATIENT
  Age: 74 Year
  Sex: Female
  Weight: 127 kg

DRUGS (1)
  1. TRETINOIN [Suspect]
     Dosage: 40MG BID PO
     Route: 048

REACTIONS (6)
  - CARDIAC ARREST [None]
  - LIVER FUNCTION TEST ABNORMAL [None]
  - PYREXIA [None]
  - RENAL FAILURE ACUTE [None]
  - RESPIRATORY DISTRESS [None]
  - RETINOIC ACID SYNDROME [None]
